FAERS Safety Report 8389723-X (Version None)
Quarter: 2012Q1

REPORT INFORMATION
  Report Type: 
  Country: None (occurrence: None)
  Receive Date: 20120323
  Receipt Date: 20110318
  Transmission Date: 20120608
  Serious: Yes (Hospitalization)
  Sender: FDA-Public Use
  Company Number: 163-21880-11032302

PATIENT
  Age: 64 Year
  Sex: Male

DRUGS (3)
  1. REVLIMID [Suspect]
     Indication: MULTIPLE MYELOMA
     Dosage: 15MG-25MG, DAILY, PO 10 MG, 1 IN 1 D, PO 25 MG, DAILY X 21 DAYS, PO
     Route: 048
     Dates: start: 20101101
  2. REVLIMID [Suspect]
     Indication: MULTIPLE MYELOMA
     Dosage: 15MG-25MG, DAILY, PO 10 MG, 1 IN 1 D, PO 25 MG, DAILY X 21 DAYS, PO
     Route: 048
     Dates: start: 20080715
  3. REVLIMID [Suspect]
     Indication: MULTIPLE MYELOMA
     Dosage: 15MG-25MG, DAILY, PO 10 MG, 1 IN 1 D, PO 25 MG, DAILY X 21 DAYS, PO
     Route: 048
     Dates: start: 20101201, end: 20110318

REACTIONS (2)
  - CLOSTRIDIAL INFECTION [None]
  - ORGAN FAILURE [None]
